FAERS Safety Report 23552906 (Version 3)
Quarter: 2024Q3

REPORT INFORMATION
  Report Type: Report from Study
  Country: IN (occurrence: IN)
  Receive Date: 20240222
  Receipt Date: 20240718
  Transmission Date: 20241017
  Serious: Yes (Other)
  Sender: ROCHE
  Company Number: IN-ROCHE-3504783

PATIENT
  Age: 71 Year
  Sex: Female

DRUGS (1)
  1. VABYSMO [Suspect]
     Active Substance: FARICIMAB\FARICIMAB-SVOA
     Indication: Peripheral exudative haemorrhagic chorioretinopathy
     Route: 050
     Dates: start: 20240125, end: 20240702

REACTIONS (4)
  - Eye haemorrhage [Unknown]
  - Off label use [Unknown]
  - Vision blurred [Unknown]
  - Photopsia [Not Recovered/Not Resolved]

NARRATIVE: CASE EVENT DATE: 20240125
